FAERS Safety Report 6736850-6 (Version None)
Quarter: 2010Q2

REPORT INFORMATION
  Report Type: 
  Country: None (occurrence: None)
  Receive Date: 20100520
  Receipt Date: 20100520
  Transmission Date: 20101027
  Serious: Yes (Other)
  Sender: FDA-Public Use
  Company Number: None

PATIENT
  Sex: Female
  Weight: 99.7913 kg

DRUGS (1)
  1. RECLIPSEN 0.15 MG-0.03 MG WATSON LABS [Suspect]
     Indication: CONTRACEPTION
     Dosage: 1 TABLET ONCE DAILY PO
     Route: 048
     Dates: start: 20081201, end: 20100518

REACTIONS (8)
  - ABDOMINAL PAIN UPPER [None]
  - BLOOD PRESSURE INCREASED [None]
  - DIARRHOEA [None]
  - DISEASE RECURRENCE [None]
  - FREQUENT BOWEL MOVEMENTS [None]
  - INSULIN RESISTANCE [None]
  - NAUSEA [None]
  - WEIGHT INCREASED [None]
